FAERS Safety Report 9538466 (Version 1)
Quarter: 2013Q3

REPORT INFORMATION
  Report Type: Spontaneous
  Country: US (occurrence: None)
  Receive Date: 20130918
  Receipt Date: 20130918
  Transmission Date: 20140515
  Serious: Yes (Disabling)
  Sender: FDA-Public Use
  Company Number: None

PATIENT
  Age: 77 Year
  Sex: Female

DRUGS (3)
  1. PRAVASTATIN [Suspect]
     Indication: BLOOD CHOLESTEROL
     Route: 048
     Dates: start: 20090407, end: 20090405
  2. MULTIVITAMIN [Concomitant]
  3. METOPROLOL [Suspect]

REACTIONS (3)
  - Arthritis [None]
  - Fatigue [None]
  - Gait disturbance [None]
